FAERS Safety Report 7760904-9 (Version None)
Quarter: 2011Q3

REPORT INFORMATION
  Report Type: 
  Country: None (occurrence: None)
  Receive Date: 20110919
  Receipt Date: 20110914
  Transmission Date: 20111222
  Serious: Yes (Hospitalization, Disabling, Other)
  Sender: FDA-Public Use
  Company Number: US-MERCK-1106USA02745

PATIENT
  Age: 46 Year
  Sex: Female
  Weight: 94 kg

DRUGS (5)
  1. FOSAMAX [Suspect]
     Indication: OSTEOPENIA
     Route: 048
     Dates: start: 19980101, end: 20081201
  2. FOSAMAX [Suspect]
     Indication: OSTEOPOROSIS
     Route: 048
     Dates: start: 19980101, end: 20081201
  3. CLIMARA [Concomitant]
     Indication: HORMONE REPLACEMENT THERAPY
     Route: 065
     Dates: start: 19970101, end: 20080101
  4. VITAMINS (UNSPECIFIED) [Concomitant]
     Route: 065
     Dates: start: 19960101
  5. METHOTREXATE [Suspect]
     Indication: RHEUMATOID ARTHRITIS
     Route: 065
     Dates: start: 20060101, end: 20110603

REACTIONS (22)
  - RHEUMATOID ARTHRITIS [None]
  - VITAMIN D DEFICIENCY [None]
  - GASTROOESOPHAGEAL REFLUX DISEASE [None]
  - DEPRESSION [None]
  - FRACTURE DELAYED UNION [None]
  - MENOPAUSAL SYMPTOMS [None]
  - FEMUR FRACTURE [None]
  - FOOT FRACTURE [None]
  - RAYNAUD'S PHENOMENON [None]
  - SYSTEMIC LUPUS ERYTHEMATOSUS [None]
  - PAIN [None]
  - OEDEMA [None]
  - IMPAIRED HEALING [None]
  - CALCIUM DEFICIENCY [None]
  - FIBROMYALGIA [None]
  - HEPATIC ENZYME INCREASED [None]
  - MIGRAINE [None]
  - FALL [None]
  - BREAKTHROUGH PAIN [None]
  - HYPERTENSION [None]
  - ANXIETY [None]
  - STAPHYLOCOCCAL INFECTION [None]
